FAERS Safety Report 12173873 (Version 2)
Quarter: 2018Q1

REPORT INFORMATION
  Report Type: Spontaneous
  Country: US (occurrence: US)
  Receive Date: 20160314
  Receipt Date: 20180322
  Transmission Date: 20180508
  Serious: Yes (Hospitalization, Other)
  Sender: FDA-Public Use
  Company Number: US-GLENMARK PHARMACEUTICALS INC, USA.-2016GMK021904

PATIENT
  Age: 72 Year
  Sex: Male

DRUGS (2)
  1. STATIN                             /00084401/ [Interacting]
     Active Substance: THIABENDAZOLE
     Indication: PRODUCT USED FOR UNKNOWN INDICATION
     Dosage: UNK
  2. FLUCONAZOLE. [Suspect]
     Active Substance: FLUCONAZOLE
     Indication: ONYCHOMYCOSIS
     Dosage: UNK

REACTIONS (3)
  - Drug interaction [Unknown]
  - Drug-induced liver injury [Recovering/Resolving]
  - Off label use [Unknown]
